FAERS Safety Report 12364181 (Version 1)
Quarter: 2016Q2

REPORT INFORMATION
  Report Type: Spontaneous
  Country: SI (occurrence: SI)
  Receive Date: 20160513
  Receipt Date: 20160513
  Transmission Date: 20160815
  Serious: Yes (Hospitalization)
  Sender: FDA-Public Use
  Company Number: SI-SA-2016SA093137

PATIENT
  Age: 72 Year
  Sex: Female

DRUGS (1)
  1. CHLOROQUINE PHOSPHATE. [Suspect]
     Active Substance: CHLOROQUINE PHOSPHATE
     Indication: SJOGREN^S SYNDROME
     Route: 065

REACTIONS (2)
  - Product use issue [Unknown]
  - Atrioventricular block complete [Unknown]
